FAERS Safety Report 17557609 (Version 1)
Quarter: 2020Q1

REPORT INFORMATION
  Report Type: Spontaneous
  Country: FR (occurrence: FR)
  Receive Date: 20200318
  Receipt Date: 20200318
  Transmission Date: 20200409
  Serious: Yes (Other)
  Sender: FDA-Public Use
  Company Number: FR-BAYER-2020-042150

PATIENT
  Age: 31 Year
  Sex: Female
  Weight: 56 kg

DRUGS (1)
  1. MIRENA [Suspect]
     Active Substance: LEVONORGESTREL
     Indication: INTRAUTERINE CONTRACEPTION
     Dosage: 20?G PER DAY CONT
     Route: 015
     Dates: start: 20100101, end: 20200129

REACTIONS (16)
  - Muscular weakness [Recovering/Resolving]
  - Anxiety [Recovered/Resolved]
  - Amnesia [Recovering/Resolving]
  - Back pain [Recovering/Resolving]
  - Poor quality sleep [Recovered/Resolved]
  - Abdominal pain upper [Recovering/Resolving]
  - Fatigue [Recovering/Resolving]
  - Diffuse alopecia [Recovering/Resolving]
  - Abdominal pain [Recovering/Resolving]
  - Thirst [Recovering/Resolving]
  - Depression [Recovered/Resolved]
  - Mood swings [Recovered/Resolved]
  - Vertigo [Recovering/Resolving]
  - Dry eye [Recovering/Resolving]
  - Headache [Recovering/Resolving]
  - Swelling face [Recovering/Resolving]

NARRATIVE: CASE EVENT DATE: 201002
